FAERS Safety Report 17346511 (Version 1)
Quarter: 2020Q1

REPORT INFORMATION
  Report Type: Report from Study
  Country: US (occurrence: US)
  Receive Date: 20200129
  Receipt Date: 20200129
  Transmission Date: 20200409
  Serious: No
  Sender: FDA-Public Use
  Company Number: US-EXELIXIS-CABO-19022915

PATIENT
  Sex: Female

DRUGS (14)
  1. CENTRUM [Concomitant]
     Active Substance: VITAMINS
  2. VITAMIN B12 [Concomitant]
     Active Substance: CYANOCOBALAMIN
  3. TRAZODONE [Concomitant]
     Active Substance: TRAZODONE HYDROCHLORIDE
  4. GLUCOSAMINE [Concomitant]
     Active Substance: GLUCOSAMINE
  5. VITAMIN E [Concomitant]
     Active Substance: .ALPHA.-TOCOPHEROL
  6. CABOMETYX [Suspect]
     Active Substance: CABOZANTINIB S-MALATE
     Indication: METASTASES TO PELVIS
  7. VITAMIN C [Concomitant]
     Active Substance: ASCORBIC ACID
  8. CLONAZEPAM. [Concomitant]
     Active Substance: CLONAZEPAM
  9. TYLENOL [Concomitant]
     Active Substance: ACETAMINOPHEN
  10. TUMS [Concomitant]
     Active Substance: CALCIUM CARBONATE
  11. CABOMETYX [Suspect]
     Active Substance: CABOZANTINIB S-MALATE
     Indication: METASTASES TO KIDNEY
     Dosage: 40 MG, QD
     Route: 048
     Dates: start: 20190612
  12. VITAMIN D3 [Concomitant]
     Active Substance: CHOLECALCIFEROL
  13. LECITHIN [Concomitant]
     Active Substance: LECITHIN
  14. GINKO BILOBA [Concomitant]
     Active Substance: GINKGO

REACTIONS (4)
  - Dyspnoea [Unknown]
  - Off label use [Unknown]
  - Nervousness [Unknown]
  - Anxiety [Unknown]
